FAERS Safety Report 8798810 (Version 1)
Quarter: 2012Q4

REPORT INFORMATION
  Report Type: 
  Country: US (occurrence: US)
  Receive Date: 20120920
  Receipt Date: 20120920
  Transmission Date: 20130627
  Serious: Yes (Hospitalization)
  Sender: FDA-Public Use
  Company Number: US-GLAXOSMITHKLINE-A0899184A

PATIENT
  Sex: Female

DRUGS (2)
  1. AVANDAMET [Suspect]
     Indication: DIABETES MELLITUS
     Route: 048
     Dates: end: 2010
  2. AVANDIA [Suspect]
     Indication: TYPE 2 DIABETES MELLITUS
     Route: 048
     Dates: start: 2001

REACTIONS (8)
  - Pain [Unknown]
  - Cardiac hypertrophy [Unknown]
  - Systolic dysfunction [Unknown]
  - Cardiomegaly [Unknown]
  - Chest pain [Unknown]
  - Chest discomfort [Unknown]
  - Hypertension [Unknown]
  - Injury [Unknown]
